FAERS Safety Report 5033742-8 (Version None)
Quarter: 2006Q2

REPORT INFORMATION
  Report Type: 
  Country: None (occurrence: None)
  Receive Date: 20060623
  Receipt Date: 20060519
  Transmission Date: 20061013
  Serious: Yes (Other)
  Sender: FDA-Public Use
  Company Number: 2006CG00909

PATIENT
  Age: 15074 Day
  Sex: Female
  Weight: 57 kg

DRUGS (1)
  1. XYLOCAINE [Suspect]
     Route: 030
     Dates: start: 20060509, end: 20060509

REACTIONS (5)
  - ACCIDENTAL EXPOSURE [None]
  - BURNING SENSATION [None]
  - INJECTION SITE IRRITATION [None]
  - INJECTION SITE OEDEMA [None]
  - INJECTION SITE PAIN [None]
